FAERS Safety Report 7470400-4 (Version None)
Quarter: 2011Q2

REPORT INFORMATION
  Report Type: 
  Country: None (occurrence: None)
  Receive Date: 20110510
  Receipt Date: 20110429
  Transmission Date: 20111010
  Serious: Yes (Death, Other)
  Sender: FDA-Public Use
  Company Number: US-CELGENEUS-163-21880-11043768

PATIENT
  Age: 68 Year
  Sex: Male

DRUGS (1)
  1. REVLIMID [Suspect]
     Route: 048
     Dates: start: 20070101

REACTIONS (4)
  - PANCYTOPENIA [None]
  - ACUTE LYMPHOCYTIC LEUKAEMIA [None]
  - ARTERIOVENOUS MALFORMATION [None]
  - DEATH [None]
